FAERS Safety Report 4486695-5 (Version None)
Quarter: 2004Q4

REPORT INFORMATION
  Report Type: 
  Country: None (occurrence: None)
  Receive Date: 20041021
  Receipt Date: 20041007
  Transmission Date: 20050328
  Serious: Yes (Other)
  Sender: FDA-Public Use
  Company Number: 239115

PATIENT
  Age: 72 Year
  Sex: Male
  Weight: 75 kg

DRUGS (6)
  1. NOVORAPID 30 MIX CHU FLEXPEN(INSULIN ASPART) SUSPENSION FOR INJECTION, [Suspect]
     Indication: INSULIN-REQUIRING TYPE II DIABETES MELLITUS
     Dosage: 12+0+8 IU, QD
     Dates: start: 20040801, end: 20040818
  2. HICEE (ASCORBIC ACID) [Concomitant]
  3. GLYCERON TAB (GLYCYRRHIZIC ACID) [Concomitant]
  4. DL-METHIONINE, CALCIUM CARBONATE, AMINOACETIC ACID) [Concomitant]
  5. MAGNESIUM OXIDE (MAGNESIUM OXIDE) [Concomitant]
  6. PEGINTERFERON ALFA-2A )PEGINTERFERON ALFA-2A) [Concomitant]

REACTIONS (5)
  - ALANINE AMINOTRANSFERASE INCREASED [None]
  - ASPARTATE AMINOTRANSFERASE INCREASED [None]
  - DIABETES MELLITUS INADEQUATE CONTROL [None]
  - GLYCOSYLATED HAEMOGLOBIN INCREASED [None]
  - HEPATIC FUNCTION ABNORMAL [None]
